FAERS Safety Report 23492035 (Version 1)
Quarter: 2024Q1

REPORT INFORMATION
  Report Type: Spontaneous
  Country: US (occurrence: None)
  Receive Date: 20240207
  Receipt Date: 20240207
  Transmission Date: 20240409
  Serious: No
  Sender: FDA-Public Use
  Company Number: US-ROCHE-3355009

PATIENT
  Age: 41 Year
  Sex: Female

DRUGS (2)
  1. XOLAIR [Suspect]
     Active Substance: OMALIZUMAB
     Indication: Product used for unknown indication
     Route: 065
  2. KESIMPTA [Suspect]
     Active Substance: OFATUMUMAB
     Indication: Product used for unknown indication
     Dosage: PRESCRIBED EVERY MONTH BUT ON AVERAGE SHE IS TAKING KESIMPTA EVERY 6 TO 7 WEEKS DUE TO INFECTIONS?LA
     Route: 065

REACTIONS (2)
  - Bronchitis [Unknown]
  - Sinusitis [Unknown]
